FAERS Safety Report 19772355 (Version 1)
Quarter: 2021Q3

REPORT INFORMATION
  Report Type: Other
  Country: US (occurrence: US)
  Receive Date: 20210831
  Receipt Date: 20210831
  Transmission Date: 20211014
  Serious: No
  Sender: FDA-Public Use
  Company Number: US-NEUROCRINE BIOSCIENCES INC.-2021NBI04631

PATIENT

DRUGS (2)
  1. INGREZZA [Suspect]
     Active Substance: VALBENAZINE
     Dosage: 80 MILLIGRAM, QD
     Route: 048
     Dates: start: 20210525, end: 20210816
  2. INGREZZA [Suspect]
     Active Substance: VALBENAZINE
     Indication: TARDIVE DYSKINESIA
     Dosage: 40 MILLIGRAM, QD
     Route: 048
     Dates: start: 20210518, end: 20210524

REACTIONS (6)
  - Confusional state [Unknown]
  - Dysgraphia [Unknown]
  - Musculoskeletal stiffness [Unknown]
  - Balance disorder [Unknown]
  - Dizziness [Unknown]
  - Restlessness [Unknown]

NARRATIVE: CASE EVENT DATE: 2021
